FAERS Safety Report 6144670-9 (Version None)
Quarter: 2009Q2

REPORT INFORMATION
  Report Type: 
  Country: None (occurrence: None)
  Receive Date: 20090406
  Receipt Date: 20090331
  Transmission Date: 20091009
  Serious: Yes (Other)
  Sender: FDA-Public Use
  Company Number: B0551792A

PATIENT
  Sex: Male
  Weight: 66 kg

DRUGS (7)
  1. VALTREX [Suspect]
     Indication: HERPES ZOSTER
     Dosage: 2000MG PER DAY
     Route: 048
     Dates: start: 20081210, end: 20081216
  2. ALOSITOL [Concomitant]
     Dosage: 50MG PER DAY
     Route: 048
  3. RIVOTRIL [Concomitant]
     Dosage: .5MG PER DAY
     Route: 048
  4. EPADEL [Concomitant]
     Dosage: 900MG PER DAY
     Route: 048
  5. LANSOPRAZOLE [Concomitant]
     Dosage: 15MG PER DAY
     Route: 048
  6. CALTAN [Concomitant]
     Dosage: 3G PER DAY
     Route: 048
  7. MYSLEE [Concomitant]
     Dosage: 5MG PER DAY
     Route: 048

REACTIONS (3)
  - DIZZINESS [None]
  - FEELING ABNORMAL [None]
  - MANIA [None]
